FAERS Safety Report 23986805 (Version 1)
Quarter: 2024Q2

REPORT INFORMATION
  Report Type: Spontaneous
  Country: US (occurrence: US)
  Receive Date: 20240618
  Receipt Date: 20240618
  Transmission Date: 20240716
  Serious: No
  Sender: FDA-Public Use
  Company Number: US-BRISTOL-MYERS SQUIBB COMPANY-2024-097307

PATIENT
  Age: 64 Year
  Sex: Male
  Weight: 114.7 kg

DRUGS (11)
  1. ELIQUIS [Suspect]
     Active Substance: APIXABAN
     Indication: Atrial fibrillation
     Dosage: 5 MG
  2. METOPROLOL TARTRATE [Suspect]
     Active Substance: METOPROLOL TARTRATE
     Indication: Heart rate irregular
     Dosage: 25 MG, 1X/DAY
  3. TRAZODONE [Suspect]
     Active Substance: TRAZODONE HYDROCHLORIDE
  4. KORLYM [Suspect]
     Active Substance: MIFEPRISTONE
     Indication: Cushing^s syndrome
     Dosage: 600 MG, 1X/DAY
     Route: 048
     Dates: start: 20230901
  5. CLARITIN [Concomitant]
     Active Substance: LORATADINE
  6. FARXIGA [Concomitant]
     Active Substance: DAPAGLIFLOZIN PROPANEDIOL
  7. GABAPENTIN [Concomitant]
     Active Substance: GABAPENTIN
  8. OZEMPIC [Concomitant]
     Active Substance: SEMAGLUTIDE
  9. CRESTOR [Concomitant]
     Active Substance: ROSUVASTATIN CALCIUM
  10. ACETAMINOPHEN\TRAMADOL [Concomitant]
     Active Substance: ACETAMINOPHEN\TRAMADOL
  11. TRESIBA [Concomitant]
     Active Substance: INSULIN DEGLUDEC

REACTIONS (2)
  - Heart rate increased [Unknown]
  - Sedation [Unknown]

NARRATIVE: CASE EVENT DATE: 20240301
